FAERS Safety Report 7670261-4 (Version None)
Quarter: 2011Q3

REPORT INFORMATION
  Report Type: 
  Country: None (occurrence: None)
  Receive Date: 20110809
  Receipt Date: 20110730
  Transmission Date: 20111222
  Serious: Yes (Death, Hospitalization)
  Sender: FDA-Public Use
  Company Number: US-BRISTOL-MYERS SQUIBB COMPANY-15937725

PATIENT
  Age: 49 Year
  Sex: Male
  Weight: 70 kg

DRUGS (3)
  1. SPRYCEL [Suspect]
     Indication: ACUTE MYELOID LEUKAEMIA
     Dosage: LAST DOSE: 06JUL2011
     Route: 048
     Dates: start: 20110625
  2. IDARUBICIN HCL [Suspect]
     Indication: ACUTE MYELOID LEUKAEMIA
     Dosage: 1DF = 24MG;LAST DOSE-27JUN2011
     Dates: start: 20110625
  3. CYTARABINE [Suspect]
     Indication: ACUTE MYELOID LEUKAEMIA
     Dosage: TOTALLY 2870MG;LAST DOSE 02JUL2011
     Route: 042
     Dates: start: 20110625

REACTIONS (4)
  - RESPIRATORY FAILURE [None]
  - RENAL FAILURE ACUTE [None]
  - MULTI-ORGAN FAILURE [None]
  - HAEMORRHAGE INTRACRANIAL [None]
